FAERS Safety Report 9088768 (Version 1)
Quarter: 2013Q1

REPORT INFORMATION
  Report Type: Report from Study
  Country: US (occurrence: US)
  Receive Date: 20130218
  Receipt Date: 20130218
  Transmission Date: 20140127
  Serious: No
  Sender: FDA-Public Use
  Company Number: US-ABBOTT-12P-163-0957895-00

PATIENT
  Sex: Male
  Weight: 124.85 kg

DRUGS (7)
  1. SIMCOR 750MG/20MG [Suspect]
     Indication: HIGH DENSITY LIPOPROTEIN INCREASED
     Dosage: 2-750MG/20MG DOSE
     Dates: start: 201001
  2. SIMCOR 750MG/20MG [Suspect]
     Indication: HIGH DENSITY LIPOPROTEIN INCREASED
  3. ASA [Concomitant]
     Indication: PRODUCT USED FOR UNKNOWN INDICATION
  4. ZETIA [Concomitant]
     Indication: PRODUCT USED FOR UNKNOWN INDICATION
  5. TOPROL [Concomitant]
     Indication: PRODUCT USED FOR UNKNOWN INDICATION
  6. METFORMIN [Concomitant]
     Indication: PRODUCT USED FOR UNKNOWN INDICATION
  7. LOTREL [Concomitant]
     Indication: PRODUCT USED FOR UNKNOWN INDICATION

REACTIONS (2)
  - Flushing [Recovered/Resolved]
  - Rash [Unknown]
